FAERS Safety Report 21052150 (Version 10)
Quarter: 2024Q3

REPORT INFORMATION
  Report Type: Spontaneous
  Country: US (occurrence: US)
  Receive Date: 20220707
  Receipt Date: 20240918
  Transmission Date: 20241016
  Serious: Yes (Other)
  Sender: PFIZER
  Company Number: US-PFIZER INC-202200930424

PATIENT
  Age: 75 Year
  Sex: Female
  Weight: 70.76 kg

DRUGS (11)
  1. PREMARIN [Suspect]
     Active Substance: ESTROGENS, CONJUGATED
     Indication: Vaginal mesh removal surgery
     Dosage: UNK
     Route: 067
  2. PREMARIN [Suspect]
     Active Substance: ESTROGENS, CONJUGATED
     Indication: Vulvovaginal dryness
     Dosage: UNK, 2X/WEEK (PUT CREAM THE SIZE OF A BLUE BERRY)
     Route: 067
  3. PREMARIN [Suspect]
     Active Substance: ESTROGENS, CONJUGATED
     Indication: Vulvovaginal pain
     Dosage: 0.5 G (INSERT 0.5 G 3 TIMES A WEEK BY VAGINAL ROUTE AT BEDTIME FOR 90 DAYS)
     Route: 067
  4. PREMARIN [Suspect]
     Active Substance: ESTROGENS, CONJUGATED
     Indication: Vaginal disorder
     Dosage: THREE TIMES A WEEK AND IT IS 0.625 MG-G
  5. PREMARIN [Suspect]
     Active Substance: ESTROGENS, CONJUGATED
     Indication: Scar
  6. PREMARIN [Suspect]
     Active Substance: ESTROGENS, CONJUGATED
     Indication: Atrophic vulvovaginitis
  7. PREMARIN [Suspect]
     Active Substance: ESTROGENS, CONJUGATED
     Indication: Urinary tract infection
  8. OMEPRAZOLE [Concomitant]
     Active Substance: OMEPRAZOLE
     Indication: Gastrooesophageal reflux disease
     Dosage: UNK
  9. FAMOTIDINE [Concomitant]
     Active Substance: FAMOTIDINE
     Indication: Gastrooesophageal reflux disease
     Dosage: UNK
  10. METHENAMINE HIPPURATE EQL PHARMA [Concomitant]
     Indication: Urinary tract infection
     Dosage: 1 G, 1X/DAY
  11. MELOXICAM [Concomitant]
     Active Substance: MELOXICAM
     Indication: Arthritis
     Dosage: 15 MG

REACTIONS (11)
  - Knee arthroplasty [Unknown]
  - Hip arthroplasty [Unknown]
  - Urethral injury [Unknown]
  - Weight decreased [Unknown]
  - Decreased appetite [Unknown]
  - Osteoporosis [Unknown]
  - Hypertonic bladder [Unknown]
  - Feeling abnormal [Unknown]
  - Off label use [Unknown]
  - Wrong technique in product usage process [Unknown]
  - Product prescribing error [Unknown]

NARRATIVE: CASE EVENT DATE: 20220603
